FAERS Safety Report 7397112-X (Version None)
Quarter: 2011Q2

REPORT INFORMATION
  Report Type: 
  Country: None (occurrence: None)
  Receive Date: 20110406
  Receipt Date: 20110330
  Transmission Date: 20111010
  Serious: Yes (Hospitalization)
  Sender: FDA-Public Use
  Company Number: A0920572A

PATIENT
  Age: 76 Year
  Sex: Female

DRUGS (4)
  1. COREG [Suspect]
     Route: 065
  2. LOSARTAN POTASSIUM [Suspect]
     Route: 065
  3. LASIX [Suspect]
     Route: 065
  4. ALDACTONE [Suspect]
     Route: 065

REACTIONS (5)
  - CONFUSIONAL STATE [None]
  - FLUID RETENTION [None]
  - MENTAL DISORDER [None]
  - DRUG ADMINISTRATION ERROR [None]
  - RENAL INJURY [None]
